FAERS Safety Report 6187719-X (Version None)
Quarter: 2009Q2

REPORT INFORMATION
  Report Type: 
  Country: None (occurrence: None)
  Receive Date: 20090513
  Receipt Date: 20090430
  Transmission Date: 20091009
  Serious: Yes (Hospitalization)
  Sender: FDA-Public Use
  Company Number: FR-PFIZER INC-2009205733

PATIENT
  Age: 86 Year

DRUGS (12)
  1. LYRICA [Suspect]
     Dosage: UNK, 75 MG/ DAY
     Route: 048
     Dates: end: 20090101
  2. ISOPTIN [Suspect]
     Dosage: 40 MG, EVERY 3 DAYS
  3. COZAAR [Concomitant]
  4. PLAVIX [Concomitant]
  5. FUROSEMIDE [Concomitant]
  6. SEREVENT [Concomitant]
  7. BRICANYL [Concomitant]
  8. OMEPRAZOLE [Concomitant]
  9. MOLSIDOMINE [Concomitant]
  10. NITRODERM [Concomitant]
  11. MUCOMYST [Concomitant]
  12. ATROVENT [Concomitant]

REACTIONS (2)
  - COLONIC PSEUDO-OBSTRUCTION [None]
  - ILEUS [None]
